FAERS Safety Report 5152298-2 (Version None)
Quarter: 2006Q4

REPORT INFORMATION
  Report Type: 
  Country: None (occurrence: None)
  Receive Date: 20061116
  Receipt Date: 20061103
  Transmission Date: 20070319
  Serious: Yes (Other)
  Sender: FDA-Public Use
  Company Number: CA-AVENTIS-200621486GDDC

PATIENT
  Age: 35 Year
  Sex: Female
  Weight: 94 kg

DRUGS (7)
  1. FLAGYL [Suspect]
     Route: 042
  2. TYLENOL W/ CODEINE NO. 3 [Suspect]
     Dosage: DOSE: 1.5 DOSAGE FORM
  3. NAPROSYN                           /00256201/ [Suspect]
     Route: 048
  4. GENTAMICIN [Concomitant]
     Route: 042
  5. METHYLDOPA [Concomitant]
     Route: 048
  6. DOCUSATE SODIUM [Concomitant]
  7. ACETAMINOPHEN [Concomitant]
     Route: 048

REACTIONS (5)
  - BLINDNESS TRANSIENT [None]
  - BURNING SENSATION [None]
  - DYSPNOEA [None]
  - SPEECH DISORDER [None]
  - TONGUE OEDEMA [None]
